FAERS Safety Report 9944025 (Version 2)
Quarter: 2014Q1

REPORT INFORMATION
  Report Type: Spontaneous
  Country: US (occurrence: US)
  Receive Date: 20140303
  Receipt Date: 20140303
  Transmission Date: 20141002
  Serious: Yes (Disabling)
  Sender: FDA-Public Use
  Company Number: US-GE HEALTHCARE MEDICAL DIAGNOSTICS-OSCN-PR-0801S-0044

PATIENT
  Age: 48 Year
  Sex: Female

DRUGS (8)
  1. GADOLINIUM (UNSPECIFIED) [Suspect]
     Indication: RENAL CANCER
     Route: 042
     Dates: start: 19961030, end: 19961030
  2. GADOLINIUM (UNSPECIFIED) [Suspect]
     Route: 042
     Dates: start: 19970430, end: 19970430
  3. GADOLINIUM (UNSPECIFIED) [Suspect]
     Route: 042
     Dates: start: 19971117, end: 19971117
  4. GADOLINIUM (UNSPECIFIED) [Suspect]
     Route: 042
     Dates: start: 19981231, end: 19981231
  5. GADOLINIUM (UNSPECIFIED) [Suspect]
     Route: 042
     Dates: start: 19991109, end: 19991109
  6. GADOLINIUM (UNSPECIFIED) [Suspect]
     Route: 042
     Dates: start: 20020130, end: 20020130
  7. MAGNEVIST [Suspect]
     Indication: RENAL CELL CARCINOMA
     Route: 042
     Dates: start: 20001108, end: 20001108
  8. MAGNEVIST [Suspect]
     Route: 042
     Dates: start: 20030320, end: 20030320

REACTIONS (1)
  - Nephrogenic systemic fibrosis [Not Recovered/Not Resolved]
